FAERS Safety Report 17913043 (Version 5)
Quarter: 2021Q3

REPORT INFORMATION
  Report Type: Spontaneous
  Country: US (occurrence: US)
  Receive Date: 20200618
  Receipt Date: 20210812
  Transmission Date: 20211014
  Serious: Yes (Death, Hospitalization, Other)
  Sender: FDA-Public Use
  Company Number: US-GILEAD-2020-0473547

PATIENT
  Age: 64 Year
  Sex: Male
  Weight: 58.96 kg

DRUGS (74)
  1. HALOPERIDOL. [Concomitant]
     Active Substance: HALOPERIDOL
  2. HEPARIN [Concomitant]
     Active Substance: HEPARIN SODIUM
  3. PREDNISONE. [Concomitant]
     Active Substance: PREDNISONE
  4. CELEBREX [Concomitant]
     Active Substance: CELECOXIB
  5. RESTORIL [CHLORMEZANONE] [Concomitant]
     Active Substance: CHLORMEZANONE
  6. ALBENZA [Concomitant]
     Active Substance: ALBENDAZOLE
  7. GAVILYTE ? C [Concomitant]
     Active Substance: POLYETHYLENE GLYCOL 3350\POTASSIUM CHLORIDE\SODIUM BICARBONATE\SODIUM CHLORIDE\SODIUM SULFATE
  8. WELLBUTRIN XL [Concomitant]
     Active Substance: BUPROPION HYDROCHLORIDE
  9. AMOXICILLIN. [Concomitant]
     Active Substance: AMOXICILLIN
  10. CYCLOSPORINE. [Concomitant]
     Active Substance: CYCLOSPORINE
  11. INDINAVIR [Concomitant]
     Active Substance: INDINAVIR
  12. PREDNISOLONE. [Concomitant]
     Active Substance: PREDNISOLONE
  13. EPIVIR [Concomitant]
     Active Substance: LAMIVUDINE
  14. ATROPINE. [Concomitant]
     Active Substance: ATROPINE
  15. FLUCONAZOLE. [Concomitant]
     Active Substance: FLUCONAZOLE
  16. PLAQUENIL S [Concomitant]
     Active Substance: HYDROXYCHLOROQUINE SULFATE
  17. MIRTAZAPINE. [Concomitant]
     Active Substance: MIRTAZAPINE
  18. CORTISONE [Concomitant]
     Active Substance: CORTISONE
  19. CEFTRIAXONE. [Concomitant]
     Active Substance: CEFTRIAXONE
  20. ADAPALENE. [Concomitant]
     Active Substance: ADAPALENE
  21. CLINDAMYCIN. [Concomitant]
     Active Substance: CLINDAMYCIN
  22. ERYTHROMYCIN. [Concomitant]
     Active Substance: ERYTHROMYCIN
  23. KETOROLAC [Concomitant]
     Active Substance: KETOROLAC TROMETHAMINE
  24. VITRON C [ASCORBIC ACID;FERROUS FUMARATE] [Concomitant]
  25. RESTASIS [Concomitant]
     Active Substance: CYCLOSPORINE
  26. TRUVADA [Suspect]
     Active Substance: EMTRICITABINE\TENOFOVIR DISOPROXIL FUMARATE
     Indication: HIV INFECTION
     Dosage: UNK
     Route: 048
     Dates: start: 2004, end: 2013
  27. LISINOPRIL. [Concomitant]
     Active Substance: LISINOPRIL
  28. CRESTOR [Concomitant]
     Active Substance: ROSUVASTATIN CALCIUM
  29. GANCICLOVIR. [Concomitant]
     Active Substance: GANCICLOVIR
  30. ISENTRESS [Concomitant]
     Active Substance: RALTEGRAVIR POTASSIUM
  31. ZIAGEN [Concomitant]
     Active Substance: ABACAVIR SULFATE
  32. LEVOFLOXACIN. [Concomitant]
     Active Substance: LEVOFLOXACIN
  33. DRONABINOL. [Concomitant]
     Active Substance: DRONABINOL
  34. AZITHROMYCIN ANHYDROUS. [Concomitant]
     Active Substance: AZITHROMYCIN ANHYDROUS
  35. DUTASTERIDE. [Concomitant]
     Active Substance: DUTASTERIDE
  36. LAMIVUDINE. [Concomitant]
     Active Substance: LAMIVUDINE
  37. LOVENOX [LEVOFLOXACIN] [Concomitant]
     Active Substance: LEVOFLOXACIN
  38. HYDROCODONE BITARTRATE AND IBUPROFEN [Concomitant]
     Active Substance: HYDROCODONE BITARTRATE\IBUPROFEN
  39. ACETAMINOPHEN AND CODEINE [Concomitant]
     Active Substance: ACETAMINOPHEN\CODEINE PHOSPHATE
  40. AZULFIDINE [Concomitant]
     Active Substance: SULFASALAZINE
  41. INTELENCE [Concomitant]
     Active Substance: ETRAVIRINE
  42. CLOTRIMAZOLE. [Concomitant]
     Active Substance: CLOTRIMAZOLE
  43. TEMAZEPAM. [Concomitant]
     Active Substance: TEMAZEPAM
  44. PENICILLIN NOS [Concomitant]
     Active Substance: PENICILLIN
  45. TRIMIX (ALPROSTADIL\PAPAVERINE\PHENTOLAMINE) [Concomitant]
     Active Substance: ALPROSTADIL\PAPAVERINE\PHENTOLAMINE
  46. STRIBILD [Suspect]
     Active Substance: COBICISTAT\ELVITEGRAVIR\EMTRICITABINE\TENOFOVIR DISOPROXIL FUMARATE
     Indication: HIV INFECTION
     Dosage: UNK
     Route: 048
     Dates: start: 2012, end: 2012
  47. ASPIRIN EC [Concomitant]
     Active Substance: ASPIRIN
  48. ALENDRONATE [Concomitant]
     Active Substance: ALENDRONATE SODIUM
  49. DEPAKOTE [Concomitant]
     Active Substance: DIVALPROEX SODIUM
  50. DEXAMETHASONE. [Concomitant]
     Active Substance: DEXAMETHASONE
  51. PANTOPRAZOLE [Concomitant]
     Active Substance: PANTOPRAZOLE
  52. VANCOMYCIN [Concomitant]
     Active Substance: VANCOMYCIN
  53. NORVIR [Concomitant]
     Active Substance: RITONAVIR
  54. PREZISTA [Concomitant]
     Active Substance: DARUNAVIR ETHANOLATE
  55. ACETAMINOPHEN AND CODEINE [Concomitant]
     Active Substance: ACETAMINOPHEN\CODEINE PHOSPHATE
  56. ANDROGEL [Concomitant]
     Active Substance: TESTOSTERONE
  57. BENZONATATE. [Concomitant]
     Active Substance: BENZONATATE
  58. CABERGOLINE. [Concomitant]
     Active Substance: CABERGOLINE
  59. TRUVADA [Suspect]
     Active Substance: EMTRICITABINE\TENOFOVIR DISOPROXIL FUMARATE
     Dosage: UNK
     Route: 048
     Dates: start: 2004, end: 20140625
  60. SULFASALAZINE. [Concomitant]
     Active Substance: SULFASALAZINE
  61. DIPHENOXYLATE HYDROCHLORIDE AND ATROPINE SULFATE [Concomitant]
     Active Substance: ATROPINE SULFATE\DIPHENOXYLATE HYDROCHLORIDE
  62. BUPROPION HYDROCHLORIDE XL [Concomitant]
     Active Substance: BUPROPION HYDROCHLORIDE
  63. CHLORHEXIDINE [Concomitant]
     Active Substance: CHLORHEXIDINE
  64. VIAGRA [Concomitant]
     Active Substance: SILDENAFIL CITRATE
  65. MARIJUANA [Concomitant]
     Active Substance: CANNABIS SATIVA SUBSP. INDICA TOP
  66. BICARBONATE SODIUM [Concomitant]
     Active Substance: SODIUM BICARBONATE
  67. MEDROL [Concomitant]
     Active Substance: METHYLPREDNISOLONE
  68. BACTRIM [Concomitant]
     Active Substance: SULFAMETHOXAZOLE\TRIMETHOPRIM
  69. FLOMAX RELIEF [Concomitant]
     Active Substance: TAMSULOSIN HYDROCHLORIDE
  70. LITHIUM. [Concomitant]
     Active Substance: LITHIUM
  71. BICALUTAMIDE. [Concomitant]
     Active Substance: BICALUTAMIDE
  72. CIPROFLOXACIN HCL [Concomitant]
     Active Substance: CIPROFLOXACIN HYDROCHLORIDE
  73. ZESTRIL [Concomitant]
     Active Substance: LISINOPRIL
  74. OXANDROLONE. [Concomitant]
     Active Substance: OXANDROLONE

REACTIONS (15)
  - Tooth loss [Recovered/Resolved]
  - Osteopenia [Recovered/Resolved]
  - Bone density decreased [Unknown]
  - Death [Fatal]
  - Compression fracture [Recovered/Resolved]
  - Acute kidney injury [Recovered/Resolved]
  - Acute kidney injury [Recovered/Resolved]
  - Multiple fractures [Unknown]
  - Osteoporosis [Not Recovered/Not Resolved]
  - Spinal fracture [Unknown]
  - Emotional distress [Not Recovered/Not Resolved]
  - Osteopenia [Recovered/Resolved]
  - Chronic kidney disease [Not Recovered/Not Resolved]
  - Renal failure [Recovered/Resolved]
  - Pain [Not Recovered/Not Resolved]

NARRATIVE: CASE EVENT DATE: 2010
